FAERS Safety Report 7880335-0 (Version None)
Quarter: 2011Q4

REPORT INFORMATION
  Report Type: 
  Country: None (occurrence: None)
  Receive Date: 20111101
  Receipt Date: 20111028
  Transmission Date: 20120403
  Serious: Yes (Death, Hospitalization, Other)
  Sender: FDA-Public Use
  Company Number: US-AMGEN-USASP2011046387

PATIENT
  Age: 76 Year
  Sex: Female
  Weight: 65.76 kg

DRUGS (12)
  1. HYDROCHLOROTHIAZIDE [Concomitant]
  2. VITAMIN D [Concomitant]
  3. ASPIRIN [Concomitant]
     Dosage: 81 MG, UNK
  4. ACTONEL [Concomitant]
  5. ZOLOFT [Concomitant]
  6. NPLATE [Suspect]
     Indication: IDIOPATHIC THROMBOCYTOPENIC PURPURA
     Dates: start: 20110414
  7. PREDNISONE [Concomitant]
     Indication: IDIOPATHIC THROMBOCYTOPENIC PURPURA
     Dosage: 10 MG, TID
     Dates: start: 20101013, end: 20110512
  8. LIPITOR [Concomitant]
  9. RAMIPRIL [Concomitant]
  10. PERCOCET [Concomitant]
  11. DANAZOL [Concomitant]
     Indication: IDIOPATHIC THROMBOCYTOPENIC PURPURA
     Dosage: 200 MG, UNK
     Dates: start: 20101117, end: 20110512
  12. NEXIUM [Concomitant]

REACTIONS (4)
  - DEATH [None]
  - BIOPSY BONE MARROW ABNORMAL [None]
  - ACUTE MYELOID LEUKAEMIA [None]
  - DISEASE PROGRESSION [None]
